FAERS Safety Report 8537845-2 (Version None)
Quarter: 2012Q3

REPORT INFORMATION
  Report Type: 
  Country: None (occurrence: None)
  Receive Date: 20120725
  Receipt Date: 20120717
  Transmission Date: 20120928
  Serious: Yes (Hospitalization)
  Sender: FDA-Public Use
  Company Number: DE-ABBOTT-12P-062-0957251-00

PATIENT
  Sex: Female

DRUGS (3)
  1. HUMIRA [Suspect]
     Dosage: 40 MG EOW
     Route: 058
     Dates: start: 20120711
  2. DRUG FOR THROMBOSIS PROPHYLAXIS [Concomitant]
     Indication: THROMBOSIS PROPHYLAXIS
  3. HUMIRA [Suspect]
     Indication: ANKYLOSING SPONDYLITIS
     Route: 058
     Dates: start: 20100901, end: 20120606

REACTIONS (2)
  - JOINT SWELLING [None]
  - CALCINOSIS [None]
